FAERS Safety Report 13408233 (Version 2)
Quarter: 2017Q2

REPORT INFORMATION
  Report Type: Spontaneous
  Country: GB (occurrence: GB)
  Receive Date: 20170406
  Receipt Date: 20170512
  Transmission Date: 20170830
  Serious: Yes (Other)
  Sender: FDA-Public Use
  Company Number: GB-TORRENT-00015144

PATIENT
  Sex: Female

DRUGS (10)
  1. PROLIA [Suspect]
     Active Substance: DENOSUMAB
  2. ARIPIPRAZOLE. [Suspect]
     Active Substance: ARIPIPRAZOLE
  3. ADCAL-D3 [Suspect]
     Active Substance: CALCIUM CARBONATE\CHOLECALCIFEROL
  4. OXPRENOLOL [Suspect]
     Active Substance: OXPRENOLOL
  5. ALENDRONIC ACID [Suspect]
     Active Substance: ALENDRONIC ACID
  6. AMITRIPTYLINE [Suspect]
     Active Substance: AMITRIPTYLINE
  7. BISOPROLOL [Suspect]
     Active Substance: BISOPROLOL
  8. LANSOPRAZOLE. [Suspect]
     Active Substance: LANSOPRAZOLE
  9. AMLODIPINE [Suspect]
     Active Substance: AMLODIPINE BESYLATE
  10. DOXAZOSIN [Suspect]
     Active Substance: DOXAZOSIN\DOXAZOSIN MESYLATE

REACTIONS (17)
  - Headache [Unknown]
  - Dyspnoea [Unknown]
  - Rectal prolapse [Unknown]
  - Chest discomfort [Unknown]
  - Erythema [Unknown]
  - Muscle spasms [Unknown]
  - Burning sensation [Unknown]
  - Bone pain [Unknown]
  - Pain [Unknown]
  - Influenza like illness [Unknown]
  - Arthralgia [Unknown]
  - Urinary tract infection [Unknown]
  - Abdominal discomfort [Unknown]
  - Constipation [Unknown]
  - Rhinorrhoea [Unknown]
  - Myalgia [Unknown]
  - Dysuria [Unknown]
